FAERS Safety Report 14690874 (Version 14)
Quarter: 2020Q3

REPORT INFORMATION
  Report Type: Spontaneous
  Country: JP (occurrence: JP)
  Receive Date: 20180328
  Receipt Date: 20200914
  Transmission Date: 20201102
  Serious: Yes (Life-Threatening, Hospitalization, Other)
  Sender: FDA-Public Use
  Company Number: JP-BRISTOL-MYERS SQUIBB COMPANY-BMS-2018-027650

PATIENT
  Age: 76 Year
  Sex: Male
  Weight: 56 kg

DRUGS (8)
  1. OPDIVO [Suspect]
     Active Substance: NIVOLUMAB
     Indication: GASTRIC CANCER RECURRENT
     Dosage: 3 MG/KG, UNK
     Route: 041
     Dates: start: 20180110, end: 20180307
  2. PYDOXAL [Concomitant]
     Active Substance: PYRIDOXAL
     Indication: ANAEMIA
     Dosage: 10 MILLIGRAM, BID
     Route: 048
  3. METHYCOBAL [Concomitant]
     Active Substance: METHYLCOBALAMIN
     Indication: NEURALGIA
     Dosage: 500 MICROGRAM, BID
     Route: 048
  4. FLIVAS [Concomitant]
     Active Substance: NAFTOPIDIL
     Indication: BENIGN PROSTATIC HYPERPLASIA
     Dosage: 75 MILLIGRAM, QD
     Route: 048
  5. CELECOX [Concomitant]
     Active Substance: CELECOXIB
     Indication: HEADACHE
     Dosage: 200 MILLIGRAM
     Route: 048
  6. FERROMIA [Concomitant]
     Active Substance: SODIUM FERROUS CITRATE
     Indication: ANAEMIA
     Dosage: 50 MILLIGRAM, BID
     Route: 048
  7. LYRICA [Concomitant]
     Active Substance: PREGABALIN
     Indication: NEURALGIA
     Dosage: 50 MILLIGRAM, QD
     Route: 048
  8. LOPEMIN [LOPERAMIDE HYDROCHLORIDE] [Concomitant]
     Active Substance: LOPERAMIDE HYDROCHLORIDE
     Indication: DIARRHOEA
     Dosage: 1 MILLIGRAM, BID
     Route: 048

REACTIONS (4)
  - Immune-mediated enterocolitis [Recovered/Resolved]
  - Thyroiditis [Recovered/Resolved with Sequelae]
  - Hypophysitis [Not Recovered/Not Resolved]
  - Hypopituitarism [Not Recovered/Not Resolved]

NARRATIVE: CASE EVENT DATE: 20180307
